FAERS Safety Report 10713550 (Version 2)
Quarter: 2015Q1

REPORT INFORMATION
  Report Type: Other
  Country: FR (occurrence: FR)
  Receive Date: 20150115
  Receipt Date: 20150201
  Transmission Date: 20150721
  Serious: Yes (Hospitalization)
  Sender: FDA-Public Use
  Company Number: FR-MYLANLABS-2015M1000712

PATIENT

DRUGS (11)
  1. LOVENOX [Concomitant]
     Active Substance: ENOXAPARIN SODIUM
     Indication: PRODUCT USED FOR UNKNOWN INDICATION
     Dosage: UNK
     Dates: start: 201408
  2. NICOBION [Concomitant]
     Active Substance: NIACINAMIDE
     Indication: PRODUCT USED FOR UNKNOWN INDICATION
     Dosage: UNK
     Dates: start: 201407
  3. CISPLATIN. [Suspect]
     Active Substance: CISPLATIN
     Indication: BRONCHIAL CARCINOMA
     Dosage: 1 DF, MONTHLY
     Route: 042
     Dates: start: 20140826, end: 20141209
  4. GEMZAR [Suspect]
     Active Substance: GEMCITABINE HYDROCHLORIDE
     Indication: BRONCHIAL CARCINOMA
     Dosage: 1 DF, MONTHLY
     Route: 042
     Dates: start: 20140826, end: 20141209
  5. NEULASTA [Suspect]
     Active Substance: PEGFILGRASTIM
     Indication: BRONCHIAL CARCINOMA
     Dosage: 6 MG, QD
     Route: 058
     Dates: end: 20141210
  6. VITAMIN B1 AND B6 [Concomitant]
     Active Substance: PYRIDOXINE HYDROCHLORIDE\THIAMINE HYDROCHLORIDE
     Indication: PRODUCT USED FOR UNKNOWN INDICATION
     Dosage: UNK
     Dates: start: 201408
  7. IMOVANE [Suspect]
     Active Substance: ZOPICLONE
     Indication: PRODUCT USED FOR UNKNOWN INDICATION
     Dosage: UNK
     Route: 048
     Dates: start: 201407, end: 20141213
  8. CORDARONE [Suspect]
     Active Substance: AMIODARONE HYDROCHLORIDE
     Indication: PRODUCT USED FOR UNKNOWN INDICATION
     Dosage: UNK
     Route: 048
     Dates: start: 201407, end: 20141213
  9. EUPANTOL [Suspect]
     Active Substance: PANTOPRAZOLE SODIUM
     Indication: PRODUCT USED FOR UNKNOWN INDICATION
     Dosage: UNK
     Route: 048
     Dates: start: 201407, end: 20141213
  10. EMEND [Suspect]
     Active Substance: APREPITANT
     Indication: BRONCHIAL CARCINOMA
     Dosage: UNK, CYCLE
     Route: 048
     Dates: start: 20140826, end: 20141211
  11. TERBUTALINE SULFATE. [Suspect]
     Active Substance: TERBUTALINE SULFATE
     Indication: PRODUCT USED FOR UNKNOWN INDICATION
     Dosage: UNK
     Route: 048
     Dates: start: 201407, end: 20141213

REACTIONS (1)
  - Stevens-Johnson syndrome [Recovering/Resolving]

NARRATIVE: CASE EVENT DATE: 201411
